FAERS Safety Report 9358188 (Version 2)
Quarter: 2013Q4

REPORT INFORMATION
  Report Type: Spontaneous
  Country: US (occurrence: US)
  Receive Date: 20130620
  Receipt Date: 20131004
  Transmission Date: 20140711
  Serious: Yes (Other)
  Sender: FDA-Public Use
  Company Number: US-PFIZER INC-2013109368

PATIENT
  Age: 22 Year
  Sex: Female
  Weight: 70 kg

DRUGS (3)
  1. LO/OVRAL-28 [Suspect]
     Indication: CONTRACEPTION
     Dosage: ONE TABLET DAILY
     Route: 048
     Dates: start: 20101130, end: 201201
  2. LO/OVRAL-28 [Suspect]
     Dosage: UNK
     Route: 048
     Dates: start: 201011
  3. LO/OVRAL-28 [Suspect]
     Dosage: UNK
     Route: 048
     Dates: start: 20110310

REACTIONS (3)
  - Product quality issue [Unknown]
  - Drug ineffective [Unknown]
  - Unintended pregnancy [Unknown]
